FAERS Safety Report 9013996 (Version 2)
Quarter: 2013Q1

REPORT INFORMATION
  Report Type: Report from Study
  Country: US (occurrence: US)
  Receive Date: 20130115
  Receipt Date: 20130117
  Transmission Date: 20140127
  Serious: Yes (Death)
  Sender: FDA-Public Use
  Company Number: US-ROCHE-1179622

PATIENT
  Sex: Female

DRUGS (1)
  1. CELLCEPT [Suspect]
     Indication: RENAL TRANSPLANT
     Route: 048

REACTIONS (1)
  - Hepatic failure [Fatal]
